FAERS Safety Report 21688307 (Version 1)
Quarter: 2022Q4

REPORT INFORMATION
  Report Type: Spontaneous
  Country: JP (occurrence: JP)
  Receive Date: 20221206
  Receipt Date: 20221206
  Transmission Date: 20230112
  Serious: Yes (Other)
  Sender: FDA-Public Use
  Company Number: JP-BAYER-2022A166267

PATIENT
  Age: 10 Decade
  Sex: Male

DRUGS (1)
  1. NUBEQA [Suspect]
     Active Substance: DAROLUTAMIDE
     Indication: Hormone-refractory prostate cancer
     Dosage: DAILY 1200MG
     Dates: start: 202210, end: 202211

REACTIONS (1)
  - Hormone-refractory prostate cancer [Recovered/Resolved]

NARRATIVE: CASE EVENT DATE: 20221101
